FAERS Safety Report 10089018 (Version 1)
Quarter: 2014Q2

REPORT INFORMATION
  Report Type: Spontaneous
  Country: US (occurrence: None)
  Receive Date: 20140418
  Receipt Date: 20140418
  Transmission Date: 20141212
  Serious: Yes (Disabling)
  Sender: FDA-Public Use
  Company Number: None

PATIENT
  Age: 67 Year
  Sex: Female
  Weight: 70.76 kg

DRUGS (22)
  1. ACTONEL [Suspect]
     Indication: OSTEOPENIA
     Dosage: PUFF, OR AT BEDTIME; BY MOUTH
     Dates: start: 20090801, end: 20140401
  2. AMLODIPINE BESYLATE [Concomitant]
  3. CLONAZEPAM [Concomitant]
  4. COLESTIPOL [Concomitant]
  5. HYDROCHLOROTHIAZIDE [Concomitant]
  6. IRBESARTAN [Concomitant]
  7. LEVOTHYROXINE [Concomitant]
  8. LIOTHYRONINE SODIUM [Concomitant]
  9. NOVOLOG INSULIN [Concomitant]
  10. ASPIRIN [Concomitant]
  11. VITAMIN D3 [Concomitant]
  12. L-LYSINE [Concomitant]
  13. MAGNESIUM [Concomitant]
  14. OMEGA 3 [Concomitant]
  15. ISONTONIX MULTIVITAMIN [Concomitant]
  16. ISOTONIX  CALCIUM [Concomitant]
  17. IRON [Concomitant]
  18. B12 [Concomitant]
  19. VIT. C [Concomitant]
  20. POTASSIUM-LIQUID [Concomitant]
  21. ENTOCORT [Concomitant]
  22. MEDTRONIC PARADIGM INSULIN PUMP [Concomitant]

REACTIONS (8)
  - Chills [None]
  - Tremor [None]
  - Pyrexia [None]
  - Myalgia [None]
  - Fatigue [None]
  - Dysphonia [None]
  - Diarrhoea [None]
  - Decreased appetite [None]
